FAERS Safety Report 11866990 (Version 2)
Quarter: 2015Q4

REPORT INFORMATION
  Report Type: Spontaneous
  Country: CN (occurrence: CN)
  Receive Date: 20151224
  Receipt Date: 20151229
  Transmission Date: 20160305
  Serious: Yes (Other)
  Sender: FDA-Public Use
  Company Number: CN-ELI_LILLY_AND_COMPANY-CN201512007639

PATIENT
  Age: 27 Year
  Sex: Male

DRUGS (1)
  1. CIALIS [Suspect]
     Active Substance: TADALAFIL
     Dosage: 10 MG, PRN
     Route: 048
     Dates: start: 20151222, end: 20151222

REACTIONS (3)
  - Prescription drug used without a prescription [Unknown]
  - Off label use [Unknown]
  - Erection increased [Unknown]

NARRATIVE: CASE EVENT DATE: 20151222
